FAERS Safety Report 8757775 (Version 3)
Quarter: 2013Q1

REPORT INFORMATION
  Report Type: Report from Study
  Country: FR (occurrence: FR)
  Receive Date: 20120828
  Receipt Date: 20130122
  Transmission Date: 20140127
  Serious: Yes (Other)
  Sender: FDA-Public Use
  Company Number: PHHO2012FR012213

PATIENT
  Age: 63 Year
  Sex: Male
  Weight: 82 kg

DRUGS (4)
  1. NO TREATMENT RECEIVED [Suspect]
     Indication: BREAST CANCER
     Dosage: NO TREATMENT RECEIVED
  2. FLUOROURACILE [Suspect]
     Indication: BREAST CANCER
     Dosage: 970 MG, 1 IN 3 WEEKS
     Dates: start: 20080722, end: 20081104
  3. FARMORUBICINE [Suspect]
     Indication: BREAST CANCER
     Dosage: 194 MG, 1 IN 3 WEEKS
     Dates: start: 20080722, end: 20081104
  4. ENDOXAN [Suspect]
     Indication: BREAST CANCER
     Dosage: 970 MG, 1 IN 3 WEEKS
     Route: 042
     Dates: start: 20080722, end: 20081104

REACTIONS (1)
  - Myelodysplastic syndrome [Not Recovered/Not Resolved]
